FAERS Safety Report 17627568 (Version 1)
Quarter: 2020Q2

REPORT INFORMATION
  Report Type: Spontaneous
  Country: SE (occurrence: SE)
  Receive Date: 20200405
  Receipt Date: 20200405
  Transmission Date: 20200713
  Serious: Yes (Hospitalization)
  Sender: FDA-Public Use
  Company Number: SE-ALLERGAN-2014149US

PATIENT
  Sex: Female

DRUGS (3)
  1. SYMBICORT [Suspect]
     Active Substance: BUDESONIDE\FORMOTEROL FUMARATE DIHYDRATE
     Indication: ASTHMA
     Dosage: STRENGTH ^160/45^ 2019-12-15 ^INHALED SEVERAL (PROBABLY 2) DOSES
     Route: 065
  2. VENTOLINE [Suspect]
     Active Substance: ALBUTEROL
     Indication: ASTHMA
     Dosage: 1 DF
     Route: 065
     Dates: start: 20191215, end: 20191215
  3. ESCITALOPRAM OXALATE - BP [Suspect]
     Active Substance: ESCITALOPRAM OXALATE
     Indication: DEPRESSION
     Dosage: 20 MG, QD
     Route: 065
     Dates: start: 2014

REACTIONS (3)
  - Incorrect dose administered [Unknown]
  - Electrocardiogram QT prolonged [Recovered/Resolved]
  - Hypokalaemia [Recovered/Resolved]

NARRATIVE: CASE EVENT DATE: 20191215
